FAERS Safety Report 9359779 (Version 1)
Quarter: 2013Q2

REPORT INFORMATION
  Report Type: Spontaneous
  Country: US (occurrence: US)
  Receive Date: 20130621
  Receipt Date: 20130621
  Transmission Date: 20140414
  Serious: No
  Sender: FDA-Public Use
  Company Number: US-B.I. PHARMACEUTICALS,INC./RIDGEFIELD-2013-BI-16961BP

PATIENT
  Age: 77 Year
  Sex: Male
  Weight: 93 kg

DRUGS (7)
  1. TRADJENTA [Suspect]
     Indication: DIABETES MELLITUS
     Dosage: 5 MG
     Route: 048
     Dates: start: 20130510
  2. LANTUS [Concomitant]
     Indication: DIABETES MELLITUS
     Dosage: 30 U
     Route: 058
  3. CLONAZEPAM [Concomitant]
     Indication: INSOMNIA
     Dosage: 2 MG
     Route: 048
  4. SIMVASTATIN [Concomitant]
     Indication: BLOOD CHOLESTEROL INCREASED
     Dosage: 40 MG
     Route: 048
  5. ISOSORBIDEISOSORBIDEISOSORBIDE [Concomitant]
     Indication: HYPERTENSION
     Dosage: 30 MG
     Route: 048
  6. TIKOSYN [Concomitant]
     Indication: ATRIAL FIBRILLATION
     Dosage: 1000 MG
     Route: 048
  7. MAGNESIUM [Concomitant]
     Indication: ATRIAL FIBRILLATION
     Route: 048

REACTIONS (6)
  - Arthralgia [Not Recovered/Not Resolved]
  - Musculoskeletal discomfort [Not Recovered/Not Resolved]
  - Myalgia [Not Recovered/Not Resolved]
  - Vision blurred [Recovered/Resolved]
  - Muscular weakness [Recovered/Resolved]
  - Disorientation [Recovered/Resolved]
